FAERS Safety Report 9882200 (Version 1)
Quarter: 2014Q1

REPORT INFORMATION
  Report Type: Spontaneous
  Country: US (occurrence: US)
  Receive Date: 20140207
  Receipt Date: 20140207
  Transmission Date: 20141002
  Serious: Yes (Other)
  Sender: FDA-Public Use
  Company Number: CHPA2014US001950

PATIENT
  Age: 45 Year
  Sex: Male

DRUGS (2)
  1. EXCEDRIN MIGRAINE [Suspect]
     Indication: MIGRAINE
     Dosage: 2 TO 4 UNK, UNK
     Route: 048
     Dates: start: 1968
  2. NAPROXEN [Suspect]

REACTIONS (5)
  - Concussion [Recovered/Resolved]
  - Memory impairment [Unknown]
  - Migraine [Unknown]
  - Incorrect dose administered [Unknown]
  - Drug ineffective [Unknown]
